FAERS Safety Report 5121486-3 (Version None)
Quarter: 2006Q4

REPORT INFORMATION
  Report Type: 
  Country: None (occurrence: None)
  Receive Date: 20061006
  Receipt Date: 20060926
  Transmission Date: 20070319
  Serious: Yes (Other)
  Sender: FDA-Public Use
  Company Number: ES-JNJFOC-20060705268

PATIENT
  Age: 43 Year
  Sex: Female
  Weight: 65 kg

DRUGS (2)
  1. REMICADE [Suspect]
     Indication: PSORIASIS
     Dosage: 4 INFUSIONS
     Route: 042
  2. METHOTREXATE [Concomitant]
     Route: 065

REACTIONS (1)
  - DIFFUSE LARGE B-CELL LYMPHOMA [None]
